FAERS Safety Report 23136547 (Version 1)
Quarter: 2023Q4

REPORT INFORMATION
  Report Type: Spontaneous
  Country: US (occurrence: US)
  Receive Date: 20231102
  Receipt Date: 20231102
  Transmission Date: 20240110
  Serious: No
  Sender: FDA-Public Use
  Company Number: US-OYSTER POINT PHARMA, INC-US-OYS-23-001020

PATIENT
  Age: 72 Year
  Sex: Female

DRUGS (1)
  1. TYRVAYA [Suspect]
     Active Substance: VARENICLINE TARTRATE
     Indication: Dry eye
     Dosage: 1 DOSAGE FORM, BID
     Route: 045
     Dates: start: 202308

REACTIONS (6)
  - Chest discomfort [Recovering/Resolving]
  - Dysphonia [Recovering/Resolving]
  - Oropharyngeal pain [Recovering/Resolving]
  - Burning sensation mucosal [Recovering/Resolving]
  - Cough [Recovering/Resolving]
  - Sneezing [Recovering/Resolving]

NARRATIVE: CASE EVENT DATE: 20230801
